FAERS Safety Report 10880570 (Version 1)
Quarter: 2015Q1

REPORT INFORMATION
  Report Type: Spontaneous
  Country: AR (occurrence: AR)
  Receive Date: 20150303
  Receipt Date: 20150303
  Transmission Date: 20150721
  Serious: Yes (Hospitalization, Other)
  Sender: FDA-Public Use
  Company Number: AR-009507513-1503ARG000170

PATIENT
  Age: 34 Year
  Sex: Female

DRUGS (1)
  1. NUVARING [Suspect]
     Active Substance: ETHINYL ESTRADIOL\ETONOGESTREL
     Indication: CONTRACEPTION
     Dosage: UNK UNK, QM, TOTAL DAILY DOSE 0.120 MG/0.015 MG, QD  (STRENGTH 0.120 MG/0.015 MG)
     Route: 067
     Dates: start: 2014

REACTIONS (1)
  - Carotid artery dissection [Unknown]
